FAERS Safety Report 7214531-2 (Version None)
Quarter: 2011Q1

REPORT INFORMATION
  Report Type: 
  Country: None (occurrence: None)
  Receive Date: 20110107
  Receipt Date: 20101219
  Transmission Date: 20110831
  Serious: No
  Sender: FDA-Public Use
  Company Number: US-B.I. PHARMACEUTICALS,INC./RIDGEFIELD-2010-BP-15078BP

PATIENT
  Sex: Male

DRUGS (8)
  1. PRADAXA [Suspect]
     Dosage: 150 MG
     Route: 048
     Dates: start: 20101217
  2. ZEMPLAR [Concomitant]
     Dosage: 25 MG
  3. SIMVASTATIN [Concomitant]
     Indication: BLOOD CHOLESTEROL INCREASED
     Dosage: 20 MG
     Route: 048
  4. PRADAXA [Suspect]
     Indication: ATRIAL FIBRILLATION
     Dosage: 300 MG
     Route: 048
     Dates: start: 20101208, end: 20101213
  5. ASCORBIC ACID [Concomitant]
     Indication: VITAMIN SUPPLEMENTATION
  6. FISH OIL [Concomitant]
     Indication: BLOOD CHOLESTEROL INCREASED
     Dosage: 1200 MG
  7. BUMEX [Concomitant]
     Indication: DIURETIC THERAPY
     Dosage: 0.5 MG
  8. ALLOPURINOL [Concomitant]
     Dosage: 100 MG

REACTIONS (4)
  - EPISTAXIS [None]
  - PALLOR [None]
  - ABDOMINAL PAIN UPPER [None]
  - NAUSEA [None]
